FAERS Safety Report 5387064-6 (Version None)
Quarter: 2007Q3

REPORT INFORMATION
  Report Type: 
  Country: None (occurrence: None)
  Receive Date: 20070710
  Receipt Date: 20070628
  Transmission Date: 20080115
  Serious: Yes (Hospitalization)
  Sender: FDA-Public Use
  Company Number: 235327K07USA

PATIENT
  Age: 52 Year
  Sex: Female
  Weight: 61.2356 kg

DRUGS (15)
  1. REBIF [Suspect]
     Indication: MULTIPLE SCLEROSIS
     Dosage: SEE IMAGE
     Route: 058
     Dates: end: 20070511
  2. REBIF [Suspect]
     Indication: MULTIPLE SCLEROSIS
     Dosage: SEE IMAGE
     Route: 058
     Dates: start: 20061020
  3. REBIF [Suspect]
     Indication: MULTIPLE SCLEROSIS
     Dosage: SEE IMAGE
     Route: 058
     Dates: start: 20070511
  4. SOLU-MEDROL [Suspect]
     Dosage: SEE IMAGE
     Route: 042
     Dates: start: 20070214, end: 20070214
  5. SOLU-MEDROL [Suspect]
     Dosage: SEE IMAGE
     Route: 042
     Dates: start: 20070215, end: 20070217
  6. AMANTADINE (AMANTADINE /00055901/) [Concomitant]
  7. LYRICA [Concomitant]
  8. ARICEPT [Concomitant]
  9. ERGOTAMINE (ERGOTAMINE) [Concomitant]
  10. FOSAMAX [Concomitant]
  11. MULTIVITAMIN (MULTIVITAMIN /00831701/) [Concomitant]
  12. CALCIUM WITH VITAMIN D (CALCIUM WITH VITAMIN D) [Concomitant]
  13. ASCORBIC ACID [Concomitant]
  14. GLUCOSAMINE (GLUCOSAMINE /00943601/) [Concomitant]
  15. MAGNESIUM (MAGNESIUM CARBONATE) [Concomitant]

REACTIONS (4)
  - BLOOD PRESSURE INCREASED [None]
  - CONDITION AGGRAVATED [None]
  - FEELING ABNORMAL [None]
  - MULTIPLE SCLEROSIS [None]
